FAERS Safety Report 4503887-7 (Version None)
Quarter: 2004Q4

REPORT INFORMATION
  Report Type: 
  Country: None (occurrence: None)
  Receive Date: 20041115
  Receipt Date: 20041107
  Transmission Date: 20050328
  Serious: Yes (Death, Hospitalization)
  Sender: FDA-Public Use
  Company Number: 2004238424CA

PATIENT
  Age: 44 Year
  Sex: Female
  Weight: 74.7 kg

DRUGS (3)
  1. EPIRUBICIN [Suspect]
     Indication: CERVIX CANCER METASTATIC
     Dosage: 73 MG (CYCLE 2, EVERY 3  WEEKS) IV
     Route: 042
     Dates: start: 20040810, end: 20040910
  2. IRINOTECAN HYDROCHLORIDE (IRINOTECAN HYDROCHLORIDE) [Suspect]
     Indication: CERVIX CANCER METASTATIC
     Dosage: 137 MG (CYCLE 2, EVERY 3  WEEKS), IV BOLUS
     Route: 040
     Dates: start: 20040810, end: 20040910
  3. CISPLATIN [Suspect]
     Indication: CERVIX CANCER METASTATIC
     Dosage: 91.4 MG (CYCLE 2, EVERY 3  3 WEEKS)  IV
     Route: 042
     Dates: start: 20040810, end: 20040910

REACTIONS (15)
  - ABDOMINAL DISTENSION [None]
  - ASPIRATION [None]
  - ASTHENIA [None]
  - CONSTIPATION [None]
  - DEEP VEIN THROMBOSIS [None]
  - DISEASE PROGRESSION [None]
  - DYSPNOEA [None]
  - FEELING ABNORMAL [None]
  - HYPOKALAEMIA [None]
  - INTESTINAL OBSTRUCTION [None]
  - OEDEMA PERIPHERAL [None]
  - PHLEBITIS [None]
  - PULMONARY EMBOLISM [None]
  - TENDERNESS [None]
  - VOMITING [None]
